FAERS Safety Report 8606813 (Version 3)
Quarter: 2013Q4

REPORT INFORMATION
  Report Type: Spontaneous
  Country: US (occurrence: US)
  Receive Date: 20120611
  Receipt Date: 20131129
  Transmission Date: 20140711
  Serious: Yes (Other)
  Sender: FDA-Public Use
  Company Number: US-ASTRAZENECA-2012SE36247

PATIENT
  Age: 20148 Day
  Sex: Female
  Weight: 79.4 kg

DRUGS (10)
  1. NEXIUM [Suspect]
     Indication: GASTROOESOPHAGEAL REFLUX DISEASE
     Route: 048
     Dates: start: 20080714, end: 20100329
  2. NEXIUM [Suspect]
     Indication: GASTROOESOPHAGEAL REFLUX DISEASE
     Route: 048
     Dates: start: 20090127
  3. PAXIL [Concomitant]
     Indication: ANXIETY
     Dates: start: 20090317
  4. AVAPRO [Concomitant]
     Indication: HYPERTENSION
     Dates: start: 20090124
  5. VITAMIN D [Concomitant]
     Indication: BONE DISORDER
  6. HYDROCODONE-APAP [Concomitant]
     Indication: PAIN
     Dates: start: 20100901
  7. FENOFIBRATE [Concomitant]
     Dates: start: 20090101
  8. LOVAZA [Concomitant]
     Dates: start: 20100412
  9. LEVAQUIN [Concomitant]
     Dates: start: 20100913
  10. PAROXETINE HCL [Concomitant]
     Dates: start: 20110915

REACTIONS (3)
  - Spinal fracture [Unknown]
  - Osteoporosis [Unknown]
  - Multiple fractures [Unknown]
